FAERS Safety Report 17875033 (Version 1)
Quarter: 2020Q2

REPORT INFORMATION
  Report Type: Report from Study
  Country: None (occurrence: US)
  Receive Date: 20200609
  Receipt Date: 20200609
  Transmission Date: 20200714
  Serious: Yes (Other)
  Sender: FDA-Public Use
  Company Number: US-ABBVIE-20K-163-3432539-00

PATIENT
  Sex: Female

DRUGS (2)
  1. HUMIRA [Suspect]
     Active Substance: ADALIMUMAB
     Indication: RHEUMATOID ARTHRITIS
  2. HUMIRA [Suspect]
     Active Substance: ADALIMUMAB
     Indication: PSORIASIS
     Route: 058

REACTIONS (6)
  - Dry throat [Recovering/Resolving]
  - Rash [Recovering/Resolving]
  - Stress [Recovered/Resolved]
  - Arthralgia [Recovering/Resolving]
  - Carpal tunnel syndrome [Recovering/Resolving]
  - Throat irritation [Recovering/Resolving]
